FAERS Safety Report 8346801-9 (Version None)
Quarter: 2012Q2

REPORT INFORMATION
  Report Type: 
  Country: None (occurrence: None)
  Receive Date: 20120508
  Receipt Date: 20120508
  Transmission Date: 20120825
  Serious: Yes (Disabling)
  Sender: FDA-Public Use
  Company Number: None

PATIENT
  Sex: Male
  Weight: 74.8435 kg

DRUGS (1)
  1. PROPECIA [Suspect]
     Indication: ALOPECIA
     Dosage: 1 MG. DAILY ORAL
     Route: 048
     Dates: start: 20010101, end: 20070101

REACTIONS (11)
  - GROIN PAIN [None]
  - DRY SKIN [None]
  - ALOPECIA [None]
  - SENSORY LOSS [None]
  - PEYRONIE'S DISEASE [None]
  - FEELING ABNORMAL [None]
  - STICKY SKIN [None]
  - LIP DRY [None]
  - SKIN HYPERPIGMENTATION [None]
  - LIP PAIN [None]
  - PENILE CURVATURE [None]
